FAERS Safety Report 5719366-5 (Version None)
Quarter: 2008Q2

REPORT INFORMATION
  Report Type: 
  Country: None (occurrence: None)
  Receive Date: 20080428
  Receipt Date: 20080424
  Transmission Date: 20081010
  Serious: Yes (Other)
  Sender: FDA-Public Use
  Company Number: A0702983A

PATIENT
  Sex: Female

DRUGS (3)
  1. ALLI [Suspect]
     Indication: WEIGHT LOSS DIET
     Route: 048
     Dates: start: 20080102
  2. WELLBUTRIN [Concomitant]
     Dosage: 300MG IN THE MORNING
  3. BC [Concomitant]

REACTIONS (27)
  - BALANCE DISORDER [None]
  - DEPRESSION [None]
  - DYSGEUSIA [None]
  - FALL [None]
  - FEAR [None]
  - FEELING ABNORMAL [None]
  - FLATULENCE [None]
  - GASTROENTERITIS VIRAL [None]
  - GASTROINTESTINAL DISORDER [None]
  - GASTROINTESTINAL PAIN [None]
  - HEADACHE [None]
  - HYPOMENORRHOEA [None]
  - LACK OF SATIETY [None]
  - LAZINESS [None]
  - LIP PAIN [None]
  - MALAISE [None]
  - MENSTRUATION IRREGULAR [None]
  - MUSCLE SPASMS [None]
  - ORAL HERPES [None]
  - PAIN IN EXTREMITY [None]
  - POLYMENORRHOEA [None]
  - PRURITUS [None]
  - RECTAL DISCHARGE [None]
  - SKIN LACERATION [None]
  - THERMAL BURN [None]
  - VOMITING [None]
  - WEIGHT INCREASED [None]
